FAERS Safety Report 6195743-6 (Version None)
Quarter: 2009Q2

REPORT INFORMATION
  Report Type: 
  Country: None (occurrence: None)
  Receive Date: 20090520
  Receipt Date: 20090512
  Transmission Date: 20091009
  Serious: Yes (Other)
  Sender: FDA-Public Use
  Company Number: US-TEVA-177591USA

PATIENT

DRUGS (1)
  1. HYDROCHLOROTHIAZIDE [Suspect]

REACTIONS (10)
  - BALANCE DISORDER [None]
  - BLOOD CALCIUM DECREASED [None]
  - BLOOD CHOLESTEROL INCREASED [None]
  - BLOOD ELECTROLYTES DECREASED [None]
  - BLOOD MAGNESIUM DECREASED [None]
  - BLOOD POTASSIUM DECREASED [None]
  - CHEST PAIN [None]
  - MUSCLE SPASMS [None]
  - MYOCARDIAL INFARCTION [None]
  - PALPITATIONS [None]
